FAERS Safety Report 9447512 (Version 4)
Quarter: 2013Q4

REPORT INFORMATION
  Report Type: Spontaneous
  Country: US (occurrence: US)
  Receive Date: 20130808
  Receipt Date: 20131004
  Transmission Date: 20140711
  Serious: No
  Sender: FDA-Public Use
  Company Number: US-PFIZER INC-2013214867

PATIENT
  Age: 62 Year
  Sex: Female
  Weight: 81.18 kg

DRUGS (7)
  1. NEURONTIN [Suspect]
     Indication: NEUROPATHY PERIPHERAL
     Dosage: 900 MG (3 CAPSULES OF 300MG), 3X/DAY
     Route: 048
     Dates: start: 2010
  2. CELEBREX [Concomitant]
     Dosage: UNK
  3. TOPROL XL [Concomitant]
     Dosage: UNK
  4. XANAX [Concomitant]
     Dosage: UNK
  5. CYMBALTA [Concomitant]
     Dosage: UNK
  6. CLARITIN [Concomitant]
     Dosage: UNK
  7. SYNTHROID [Concomitant]
     Dosage: 137 UG, UNK

REACTIONS (2)
  - Off label use [Unknown]
  - Drug ineffective for unapproved indication [Unknown]
